FAERS Safety Report 8443707-1 (Version None)
Quarter: 2012Q2

REPORT INFORMATION
  Report Type: 
  Country: None (occurrence: None)
  Receive Date: 20120618
  Receipt Date: 20120612
  Transmission Date: 20120825
  Serious: No
  Sender: FDA-Public Use
  Company Number: ZA-ELI_LILLY_AND_COMPANY-ZA201206005153

PATIENT
  Sex: Male

DRUGS (2)
  1. CYMBALTA [Suspect]
     Dosage: 120 MG, UNK
     Route: 048
  2. CYMBALTA [Suspect]
     Dosage: 90 MG, UNK

REACTIONS (1)
  - HEPATIC ENZYME INCREASED [None]
